FAERS Safety Report 7473125-4 (Version None)
Quarter: 2011Q2

REPORT INFORMATION
  Report Type: 
  Country: None (occurrence: None)
  Receive Date: 20110503
  Receipt Date: 20110418
  Transmission Date: 20111010
  Serious: Yes (Hospitalization)
  Sender: FDA-Public Use
  Company Number: DSU-2011-02792

PATIENT
  Age: 68 Year
  Sex: Female
  Weight: 79.3 kg

DRUGS (6)
  1. HYDROCHLOROTHIAZIDE [Concomitant]
  2. SYNTROID (LEVOTHYROXINE SODIUM) [Concomitant]
  3. ATENOLOL [Concomitant]
  4. ASPIRIN [Concomitant]
  5. BENICAR HCT [Suspect]
     Indication: ESSENTIAL HYPERTENSION
     Dosage: 20/12.5 MG (1D), PER ORAL
     Route: 048
     Dates: start: 20100421, end: 20100430
  6. TOLTGERODINE (TOLTERODINE) (TABLET) [Concomitant]

REACTIONS (8)
  - PALPITATIONS [None]
  - SINUS TACHYCARDIA [None]
  - NAUSEA [None]
  - QRS AXIS ABNORMAL [None]
  - DIZZINESS [None]
  - BLOOD GLUCOSE INCREASED [None]
  - HYPERTENSION [None]
  - LOSS OF CONSCIOUSNESS [None]
